FAERS Safety Report 16408842 (Version 4)
Quarter: 2020Q4

REPORT INFORMATION
  Report Type: Other
  Country: DE (occurrence: DE)
  Receive Date: 20190610
  Receipt Date: 20201013
  Transmission Date: 20210113
  Serious: No
  Sender: FDA-Public Use
  Company Number: DE-ROCHE-2331910

PATIENT
  Age: 57 Year
  Sex: Female
  Weight: 59 kg

DRUGS (14)
  1. OCRELIZUMAB. [Suspect]
     Active Substance: OCRELIZUMAB
     Indication: PRIMARY PROGRESSIVE MULTIPLE SCLEROSIS
     Route: 042
     Dates: start: 20180514, end: 20180528
  2. INFECTOTRIMET [Concomitant]
     Route: 048
     Dates: start: 20190601, end: 20190603
  3. VIGANTOLETTEN [Concomitant]
     Active Substance: CHOLECALCIFEROL
     Indication: PROPHYLAXIS
     Dosage: ONGOING
     Route: 048
  4. PARACETAMOL [Concomitant]
     Active Substance: ACETAMINOPHEN
     Indication: PREMEDICATION
     Route: 041
     Dates: start: 20180514, end: 20180528
  5. INFECTOTRIMET [Concomitant]
     Route: 048
     Dates: start: 20190529, end: 20190531
  6. OCRELIZUMAB. [Suspect]
     Active Substance: OCRELIZUMAB
     Dosage: ONGOING
     Route: 042
     Dates: start: 20181126
  7. FAMPYRA [Concomitant]
     Active Substance: DALFAMPRIDINE
     Dosage: ONGOING
     Route: 048
     Dates: start: 20180904
  8. PARACETAMOL [Concomitant]
     Active Substance: ACETAMINOPHEN
     Dosage: ONGOING
     Route: 041
     Dates: start: 20181126
  9. TAVEGIL [Concomitant]
     Active Substance: CLEMASTINE FUMARATE
     Route: 040
     Dates: start: 20181126
  10. METHYLPREDNISOLONE. [Concomitant]
     Active Substance: METHYLPREDNISOLONE
     Indication: PREMEDICATION
     Dosage: ONGOING
     Route: 042
     Dates: start: 20181126
  11. INFECTOTRIMET [Concomitant]
     Dosage: INCREASED LEUKOCYTES IN THE URINE
     Route: 048
     Dates: start: 20181119, end: 20181123
  12. CITALOPRAM [Concomitant]
     Active Substance: CITALOPRAM HYDROBROMIDE
     Indication: DEPRESSION
     Dosage: ONGOING
     Route: 048
  13. TAVEGIL [Concomitant]
     Active Substance: CLEMASTINE FUMARATE
     Indication: PREMEDICATION
     Route: 040
     Dates: start: 20180514, end: 20180528
  14. METHYLPREDNISOLONE. [Concomitant]
     Active Substance: METHYLPREDNISOLONE
     Route: 041

REACTIONS (2)
  - Vestibular neuronitis [Recovered/Resolved]
  - Urinary tract infection [Not Recovered/Not Resolved]

NARRATIVE: CASE EVENT DATE: 20190523
